FAERS Safety Report 9353660 (Version 1)
Quarter: 2013Q2

REPORT INFORMATION
  Report Type: Spontaneous
  Country: DK (occurrence: FR)
  Receive Date: 20130618
  Receipt Date: 20130618
  Transmission Date: 20140414
  Serious: Yes (Other)
  Sender: FDA-Public Use
  Company Number: FR-FRI-1000045957

PATIENT
  Sex: Male

DRUGS (3)
  1. ESCITALOPRAM [Suspect]
  2. MODOPAR [Concomitant]
  3. COZAAR [Concomitant]

REACTIONS (3)
  - Loss of consciousness [Recovered/Resolved]
  - Malaise [Recovered/Resolved]
  - Drug dispensing error [Recovered/Resolved]
